FAERS Safety Report 10216750 (Version 1)
Quarter: 2014Q2

REPORT INFORMATION
  Report Type: Spontaneous
  Country: SE (occurrence: SE)
  Receive Date: 20140604
  Receipt Date: 20140604
  Transmission Date: 20141212
  Serious: Yes (Hospitalization, Other)
  Sender: FDA-Public Use
  Company Number: SE-PFIZER INC-2014147263

PATIENT
  Age: 79 Year
  Sex: Female

DRUGS (10)
  1. XANOR [Suspect]
     Dosage: 0.5 MG, AS NEEDED
  2. OXASCAND [Suspect]
     Dosage: 1-3 TABLETS, AS NEEDED
     Dates: end: 201404
  3. ATORVASTAD [Concomitant]
     Dosage: UNK
  4. BRILIQUE [Concomitant]
     Dosage: UNK
  5. FURIX [Concomitant]
     Dosage: UNK
  6. RAMIPRIL [Concomitant]
     Dosage: UNK
  7. SELOKEN [Concomitant]
     Dosage: UNK
  8. SPIRONOLACTONE [Concomitant]
     Dosage: UNK
  9. TROMBYL [Concomitant]
     Dosage: UNK
  10. MOVICOL [Concomitant]
     Dosage: UNK

REACTIONS (7)
  - Accidental poisoning [Recovering/Resolving]
  - Depressed level of consciousness [Recovering/Resolving]
  - Bradycardia [Recovering/Resolving]
  - Hypotension [Recovering/Resolving]
  - Haemoglobin decreased [Recovering/Resolving]
  - Apnoea [Recovering/Resolving]
  - Gastrointestinal haemorrhage [Recovering/Resolving]
